FAERS Safety Report 5999972-3 (Version None)
Quarter: 2008Q4

REPORT INFORMATION
  Report Type: 
  Country: None (occurrence: None)
  Receive Date: 20081211
  Receipt Date: 20080701
  Transmission Date: 20090506
  Serious: No
  Sender: FDA-Public Use
  Company Number: US023975

PATIENT
  Age: 60 Year
  Sex: Female
  Weight: 95.2554 kg

DRUGS (3)
  1. TREANDA [Suspect]
     Indication: CHRONIC LYMPHOCYTIC LEUKAEMIA
     Dosage: 100 MG/M2 DAYS 2 AND 3, CYCLE TO BE REPEATED Q 28 DAYS INTRAVENOUS
     Route: 042
     Dates: start: 20080610, end: 20080612
  2. RITUXAN [Concomitant]
  3. PREVACID [Concomitant]

REACTIONS (2)
  - ABDOMINAL PAIN [None]
  - STOMATITIS [None]
